FAERS Safety Report 8942337 (Version 1)
Quarter: 2012Q4

REPORT INFORMATION
  Report Type: Spontaneous
  Country: US (occurrence: None)
  Receive Date: 20121123
  Receipt Date: 20121123
  Transmission Date: 20130627
  Serious: Yes (Hospitalization, Other)
  Sender: FDA-Public Use
  Company Number: 2012P1065077

PATIENT
  Sex: Female

DRUGS (13)
  1. REGLAN [Suspect]
     Indication: NAUSEA
  2. REGLAN [Suspect]
     Indication: VOMITING
  3. PROTONIX [Suspect]
     Indication: ACID REFLUX (ESOPHAGEAL)
     Route: 042
  4. ZANTAC [Suspect]
     Indication: ACID REFLUX (ESOPHAGEAL)
  5. ZOFRAN [Suspect]
  6. ZITHROMAX [Suspect]
     Indication: COLD
  7. ROBITUSSIN [Suspect]
     Indication: COLD
  8. IRON [Suspect]
     Route: 042
  9. PROCARDIA [Concomitant]
  10. UNSPEICIFIED NON-PFIZER ANTIBIOTICS [Concomitant]
  11. BRETIN INJECTION [Concomitant]
  12. DIFLUCAN [Concomitant]
  13. AUGMENTIN [Concomitant]

REACTIONS (11)
  - Maternal exposure during pregnancy [None]
  - Placenta praevia haemorrhage [None]
  - Catheter site infection [None]
  - Vomiting [None]
  - No therapeutic response [None]
  - Drug hypersensitivity [None]
  - Caesarean section [None]
  - Premature delivery [None]
  - Breast infection [None]
  - Candidiasis [None]
  - Urinary tract infection [None]
